FAERS Safety Report 6920647-8 (Version None)
Quarter: 2010Q3

REPORT INFORMATION
  Report Type: 
  Country: None (occurrence: None)
  Receive Date: 20100812
  Receipt Date: 20100809
  Transmission Date: 20110219
  Serious: Yes (Other)
  Sender: FDA-Public Use
  Company Number: US-ASTRAZENECA-2007UW21502

PATIENT
  Age: 14617 Day
  Sex: Female
  Weight: 86.6 kg

DRUGS (22)
  1. SEROQUEL [Suspect]
     Indication: ANXIETY
     Dosage: 200 - 400 MG
     Route: 048
     Dates: start: 20051206, end: 20070807
  2. SEROQUEL [Suspect]
     Indication: DEPRESSION
     Dosage: 200 - 400 MG
     Route: 048
     Dates: start: 20051206, end: 20070807
  3. SEROQUEL [Suspect]
     Dosage: 600-800 MG
     Route: 048
     Dates: start: 20060110
  4. SEROQUEL [Suspect]
     Dosage: 600-800 MG
     Route: 048
     Dates: start: 20060110
  5. SEROQUEL [Suspect]
     Dosage: 200 MG - 600 MG
     Route: 048
     Dates: start: 20060101, end: 20070101
  6. SEROQUEL [Suspect]
     Dosage: 200 MG - 600 MG
     Route: 048
     Dates: start: 20060101, end: 20070101
  7. KLONOPIN [Concomitant]
  8. NEURONTIN [Concomitant]
  9. CYMBALTA [Concomitant]
     Dates: start: 20050601, end: 20070801
  10. LIPITOR [Concomitant]
  11. TRICOR [Concomitant]
  12. CYTOMEL [Concomitant]
  13. ABILIFY [Concomitant]
  14. DIAZEPAM [Concomitant]
  15. CLOZARIL [Concomitant]
  16. GEODON [Concomitant]
  17. VIADA [Concomitant]
     Indication: WEIGHT CONTROL
  18. LANTUS [Concomitant]
     Indication: WEIGHT CONTROL
  19. CYMBOTA [Concomitant]
     Indication: WEIGHT CONTROL
  20. CLANAPIN [Concomitant]
     Indication: WEIGHT CONTROL
  21. BACLOFEN [Concomitant]
     Indication: WEIGHT CONTROL
  22. PHENAGREN [Concomitant]
     Indication: WEIGHT CONTROL

REACTIONS (7)
  - CARDIAC DISORDER [None]
  - DIABETES MELLITUS [None]
  - DIABETIC COMPLICATION [None]
  - DIABETIC NEUROPATHY [None]
  - SUICIDAL BEHAVIOUR [None]
  - SUICIDAL IDEATION [None]
  - TYPE 2 DIABETES MELLITUS [None]
